FAERS Safety Report 4477269-0 (Version None)
Quarter: 2004Q4

REPORT INFORMATION
  Report Type: 
  Country: None (occurrence: None)
  Receive Date: 20041018
  Receipt Date: 20040405
  Transmission Date: 20050328
  Serious: No
  Sender: FDA-Public Use
  Company Number: US-GLAXOSMITHKLINE-A0506315A

PATIENT
  Age: 15 Year
  Sex: Female

DRUGS (2)
  1. CEFTIN [Suspect]
     Indication: PNEUMONIA
     Dosage: 1TSP TWICE PER DAY
     Route: 048
     Dates: end: 20040330
  2. ALBUTEROL [Concomitant]
     Indication: PNEUMONIA

REACTIONS (2)
  - ABDOMINAL PAIN UPPER [None]
  - PHARMACEUTICAL PRODUCT COMPLAINT [None]
